FAERS Safety Report 12100768 (Version 2)
Quarter: 2016Q3

REPORT INFORMATION
  Report Type: Spontaneous
  Country: GB (occurrence: GB)
  Receive Date: 20160222
  Receipt Date: 20160708
  Transmission Date: 20161109
  Serious: Yes (Death)
  Sender: FDA-Public Use
  Company Number: GB-FRESENIUS KABI-FK201600878

PATIENT
  Age: 63 Year
  Sex: Female
  Weight: 184 kg

DRUGS (11)
  1. ATORVASTATIN [Concomitant]
     Active Substance: ATORVASTATIN
  2. ASPIRIN. [Concomitant]
     Active Substance: ASPIRIN
  3. METHYLENE BLUE. [Concomitant]
     Active Substance: METHYLENE BLUE
  4. HYDROXYZINE [Concomitant]
     Active Substance: HYDROXYZINE\HYDROXYZINE HYDROCHLORIDE
  5. REMIFENTANIL [Concomitant]
     Active Substance: REMIFENTANIL
  6. PROPOFOL. [Concomitant]
     Active Substance: PROPOFOL
  7. HUMULIN NOS [Concomitant]
     Active Substance: INSULIN HUMAN
  8. RAMIPRIL. [Concomitant]
     Active Substance: RAMIPRIL
  9. ROCURONIUM [Suspect]
     Active Substance: ROCURONIUM BROMIDE
     Indication: MUSCLE RELAXANT THERAPY
     Route: 042
     Dates: start: 20160203, end: 20160203
  10. COCODAMOL [Concomitant]
     Active Substance: ACETAMINOPHEN\CODEINE PHOSPHATE
  11. GLICLAZIDE [Concomitant]
     Active Substance: GLICLAZIDE

REACTIONS (2)
  - Cardiac arrest [Not Recovered/Not Resolved]
  - Anaphylactic reaction [Fatal]

NARRATIVE: CASE EVENT DATE: 20160203
